FAERS Safety Report 5576141-2 (Version None)
Quarter: 2007Q4

REPORT INFORMATION
  Report Type: 
  Country: None (occurrence: None)
  Receive Date: 20071130
  Receipt Date: 20070807
  Transmission Date: 20080405
  Serious: No
  Sender: FDA-Public Use
  Company Number: US200708001645

PATIENT
  Age: 59 Year
  Sex: Male
  Weight: 87.1 kg

DRUGS (10)
  1. BYETTA [Suspect]
     Indication: TYPE 2 DIABETES MELLITUS
     Dosage: 5UG, 2/D, SUBCUTANEOUS
     Route: 058
     Dates: start: 20070701
  2. EXENATIDE 5MCG PEN, [Concomitant]
  3. ACTOS                                   /USA/ (PIOGLITAZONE HYDROCHLOR [Concomitant]
  4. METFORMIN HCL [Concomitant]
  5. LOVASTATIN [Concomitant]
  6. AVAPRO [Concomitant]
  7. AMARYL [Concomitant]
  8. PROTONIX [Concomitant]
  9. VERAPAMIL [Concomitant]
  10. ASPIRIN [Concomitant]

REACTIONS (1)
  - OEDEMA PERIPHERAL [None]
